FAERS Safety Report 7269455-1 (Version None)
Quarter: 2011Q1

REPORT INFORMATION
  Report Type: 
  Country: None (occurrence: None)
  Receive Date: 20110125
  Receipt Date: 20110111
  Transmission Date: 20110831
  Serious: Yes (Hospitalization)
  Sender: FDA-Public Use
  Company Number: DKLU1067689

PATIENT
  Age: 24 Day
  Sex: Male

DRUGS (4)
  1. SABRIL [Suspect]
     Indication: EPILEPSY
     Dosage: 40 MG/KG MILLIGRAM(S) /KILOGRAM, 1 IN 1 D ; 100 MG/KG MILLIGRAM(S) /KILOGRAM, 1 IN 1 D
     Dates: start: 20110108, end: 20110108
  2. SABRIL [Suspect]
     Indication: EPILEPSY
     Dosage: 40 MG/KG MILLIGRAM(S) /KILOGRAM, 1 IN 1 D ; 100 MG/KG MILLIGRAM(S) /KILOGRAM, 1 IN 1 D
     Dates: start: 20110109
  3. CODEINE (CODEINE) [Concomitant]
  4. ALDACTONE [Concomitant]

REACTIONS (2)
  - COMA NEONATAL [None]
  - CIRCULATORY FAILURE NEONATAL [None]
